FAERS Safety Report 20090691 (Version 1)
Quarter: 2021Q4

REPORT INFORMATION
  Report Type: Spontaneous
  Country: US (occurrence: None)
  Receive Date: 20211119
  Receipt Date: 20211119
  Transmission Date: 20220304
  Serious: Yes (Hospitalization)
  Sender: FDA-Public Use
  Company Number: None

PATIENT
  Sex: Male
  Weight: 76 kg

DRUGS (2)
  1. CARBOPLATIN [Suspect]
     Active Substance: CARBOPLATIN
  2. PACLITAXEL (TAXOL) [Concomitant]

REACTIONS (8)
  - Atrial fibrillation [None]
  - Loss of personal independence in daily activities [None]
  - SARS-CoV-2 test positive [None]
  - Illness [None]
  - Lung opacity [None]
  - Lung infiltration [None]
  - Pneumonia [None]
  - Acute respiratory failure [None]

NARRATIVE: CASE EVENT DATE: 20211116
